FAERS Safety Report 10478529 (Version 1)
Quarter: 2014Q3

REPORT INFORMATION
  Report Type: Spontaneous
  Country: US (occurrence: US)
  Receive Date: 20140926
  Receipt Date: 20140926
  Transmission Date: 20150326
  Serious: No
  Sender: FDA-Public Use
  Company Number: US-ABBVIE-13P-163-1181784-00

PATIENT
  Age: 74 Year
  Sex: Female

DRUGS (1)
  1. ZEMPLAR [Suspect]
     Active Substance: PARICALCITOL
     Indication: NEPHROPATHY

REACTIONS (2)
  - Malabsorption [Not Recovered/Not Resolved]
  - Blood parathyroid hormone increased [Recovered/Resolved]

NARRATIVE: CASE EVENT DATE: 201307
